FAERS Safety Report 14655342 (Version 2)
Quarter: 2023Q4

REPORT INFORMATION
  Report Type: Spontaneous
  Country: US (occurrence: US)
  Receive Date: 20180319
  Receipt Date: 20231107
  Transmission Date: 20240110
  Serious: Yes (Other)
  Sender: FDA-Public Use
  Company Number: US-AUROBINDO-AUR-APL-2018-015062

PATIENT
  Age: 27 Year
  Sex: Female

DRUGS (2)
  1. ALPRAZOLAM [Suspect]
     Active Substance: ALPRAZOLAM
     Indication: Suicide attempt
     Dosage: 0.5 MILLIGRAM, 30 TABLETS
     Route: 048
  2. BUPROPION HYDROCHLORIDE [Suspect]
     Active Substance: BUPROPION HYDROCHLORIDE
     Indication: Suicide attempt
     Dosage: 150 MILLIGRAM, 30 TABLETS
     Route: 048

REACTIONS (9)
  - Suicide attempt [Unknown]
  - Electrocardiogram QT prolonged [Recovered/Resolved]
  - Erythema multiforme [Recovered/Resolved]
  - Tremor [Unknown]
  - Agitation [Unknown]
  - Tachycardia [Unknown]
  - Tachypnoea [Unknown]
  - Overdose [Unknown]
  - Mental status changes [Unknown]
